FAERS Safety Report 20966737 (Version 1)
Quarter: 2022Q2

REPORT INFORMATION
  Report Type: Spontaneous
  Country: US (occurrence: None)
  Receive Date: 20220615
  Receipt Date: 20220615
  Transmission Date: 20220721
  Serious: Yes (Hospitalization)
  Sender: FDA-Public Use
  Company Number: None

PATIENT
  Age: 47 Year
  Sex: Female

DRUGS (2)
  1. AMBRISENTAN [Suspect]
     Active Substance: AMBRISENTAN
     Indication: Pulmonary arterial hypertension
     Dosage: FREQUENCY : DAILY;?
     Route: 048
     Dates: start: 20201123
  2. TADALAFIL [Concomitant]
     Active Substance: TADALAFIL
     Dates: start: 20201123

REACTIONS (2)
  - Acute myocardial infarction [None]
  - Coronary artery stenosis [None]

NARRATIVE: CASE EVENT DATE: 20220615
